FAERS Safety Report 21365598 (Version 2)
Quarter: 2022Q4

REPORT INFORMATION
  Report Type: Spontaneous
  Country: US (occurrence: US)
  Receive Date: 20220922
  Receipt Date: 20221204
  Transmission Date: 20230113
  Serious: No
  Sender: FDA-Public Use
  Company Number: US-ELI_LILLY_AND_COMPANY-US202209008844

PATIENT
  Age: 64 Year
  Sex: Female

DRUGS (4)
  1. TALTZ [Suspect]
     Active Substance: IXEKIZUMAB
     Indication: Product used for unknown indication
     Dosage: 80 MG, UNKNOWN
     Route: 058
  2. TALTZ [Suspect]
     Active Substance: IXEKIZUMAB
     Indication: Product used for unknown indication
     Dosage: 80 MG, UNKNOWN
     Route: 058
  3. TALTZ [Suspect]
     Active Substance: IXEKIZUMAB
     Dosage: 80 MG, UNKNOWN
     Route: 058
  4. TALTZ [Suspect]
     Active Substance: IXEKIZUMAB
     Dosage: 80 MG, UNKNOWN
     Route: 058

REACTIONS (4)
  - Injection site erythema [Unknown]
  - Injection site haemorrhage [Unknown]
  - Injection site bruising [Unknown]
  - Incorrect dose administered [Unknown]

NARRATIVE: CASE EVENT DATE: 20220701
